FAERS Safety Report 13066146 (Version 1)
Quarter: 2016Q4

REPORT INFORMATION
  Report Type: Spontaneous
  Country: US (occurrence: US)
  Receive Date: 20161227
  Receipt Date: 20161227
  Transmission Date: 20170207
  Serious: Yes (Other)
  Sender: FDA-Public Use
  Company Number: US-TEVA-723011USA

PATIENT
  Age: 19 Year
  Sex: Male

DRUGS (5)
  1. BUSULFAN. [Suspect]
     Active Substance: BUSULFAN
     Dosage: AT EVERY 6 HOURS FOR A TOTAL OF 16 DOSES AT 0.8 MG/KG FROM DAY 9 TO DAY 6 BEFORE THE TRANSPLANTATION
     Route: 042
  2. CICLOSPORIN [Concomitant]
     Active Substance: CYCLOSPORINE
     Indication: PROPHYLAXIS AGAINST GRAFT VERSUS HOST DISEASE
     Route: 065
  3. MELPHALAN [Suspect]
     Active Substance: MELPHALAN
     Dosage: 60 MG/M 2 MELPHALAN FROM DAY 4 TO DAY 2 BEFORE THE TRANSPLANTATION
     Route: 065
  4. MYCOPHENOLATE MOFETIL. [Concomitant]
     Active Substance: MYCOPHENOLATE MOFETIL
     Indication: PROPHYLAXIS AGAINST GRAFT VERSUS HOST DISEASE
     Route: 065
  5. FLUDARABINE [Suspect]
     Active Substance: FLUDARABINE PHOSPHATE
     Dosage: 30 MG/M 2 FROM DAY 5 TO DAY 2 BEFORE THE TRANSPLANTATION
     Route: 065

REACTIONS (2)
  - Stomatitis [Recovered/Resolved]
  - Bacteraemia [Recovered/Resolved]
